FAERS Safety Report 15783200 (Version 2)
Quarter: 2019Q1

REPORT INFORMATION
  Report Type: Spontaneous
  Country: US (occurrence: US)
  Receive Date: 20190102
  Receipt Date: 20190110
  Transmission Date: 20190417
  Serious: No
  Sender: FDA-Public Use
  Company Number: US-SA-2018SA324998

PATIENT
  Age: 76 Year
  Sex: Female
  Weight: 90.71 kg

DRUGS (1)
  1. ENOXAPARIN SODIUM - WINTHROP [Suspect]
     Active Substance: ENOXAPARIN SODIUM
     Dosage: 150 MG
     Route: 042

REACTIONS (3)
  - Product quality issue [Unknown]
  - Needle issue [Unknown]
  - Injury associated with device [Unknown]
